FAERS Safety Report 10691177 (Version 1)
Quarter: 2015Q1

REPORT INFORMATION
  Report Type: Spontaneous
  Country: JP (occurrence: None)
  Receive Date: 20150102
  Receipt Date: 20150102
  Transmission Date: 20150720
  Serious: Yes (Hospitalization, Other)
  Sender: FDA-Public Use
  Company Number: JP-ZYDUS-006187

PATIENT
  Sex: Male

DRUGS (2)
  1. HALOPERIDOL (HALOPERIDOL) (HALOPERIDOL) [Suspect]
     Active Substance: HALOPERIDOL
     Indication: SCHIZOPHRENIA
  2. CLOCAPRAMINE HYDROCHLORIDE [Suspect]
     Active Substance: CLOCAPRAMINE
     Indication: SCHIZOPHRENIA

REACTIONS (4)
  - Drug withdrawal syndrome [None]
  - Drug effect decreased [None]
  - Persecutory delusion [None]
  - Rebound psychosis [None]
